FAERS Safety Report 21209894 (Version 2)
Quarter: 2022Q3

REPORT INFORMATION
  Report Type: Report from Study
  Country: US (occurrence: US)
  Receive Date: 20220813
  Receipt Date: 20220908
  Transmission Date: 20221027
  Serious: Yes (Hospitalization, Congenital Anomaly)
  Sender: FDA-Public Use
  Company Number: US-JNJFOC-20220824007

PATIENT
  Age: 8 Month
  Sex: Female
  Weight: 9.73 kg

DRUGS (1)
  1. BOSENTAN [Suspect]
     Active Substance: BOSENTAN
     Indication: Pulmonary arterial hypertension
     Route: 048
     Dates: start: 20220218

REACTIONS (2)
  - Congenital hydrocephalus [Unknown]
  - Off label use [Unknown]

NARRATIVE: CASE EVENT DATE: 20220218
